FAERS Safety Report 13270466 (Version 3)
Quarter: 2017Q3

REPORT INFORMATION
  Report Type: Spontaneous
  Country: JP (occurrence: JP)
  Receive Date: 20170224
  Receipt Date: 20170714
  Transmission Date: 20171127
  Serious: Yes (Other)
  Sender: FDA-Public Use
  Company Number: JP-JNJFOC-20170223865

PATIENT
  Age: 7 Decade
  Sex: Male
  Weight: 70 kg

DRUGS (17)
  1. AMARYL [Concomitant]
     Active Substance: GLIMEPIRIDE
     Indication: TYPE 2 DIABETES MELLITUS
     Dosage: BEFORE BREAKFAST
     Route: 048
     Dates: start: 20151219, end: 20160414
  2. AMITIZA [Concomitant]
     Active Substance: LUBIPROSTONE
     Route: 048
     Dates: start: 20130419
  3. AMARYL [Concomitant]
     Active Substance: GLIMEPIRIDE
     Indication: TYPE 2 DIABETES MELLITUS
     Dosage: STARED BEFORE 2009
     Route: 048
     Dates: start: 20160415, end: 20160617
  4. MADOPAR [Concomitant]
     Active Substance: BENSERAZIDE HYDROCHLORIDE\LEVODOPA
     Dosage: THRICE DAILY
     Dates: start: 20120323
  5. LYRICA [Concomitant]
     Active Substance: PREGABALIN
     Route: 048
     Dates: start: 20140124
  6. COMTAN [Concomitant]
     Active Substance: ENTACAPONE
     Route: 048
     Dates: start: 20150725
  7. CYMBALTA [Concomitant]
     Active Substance: DULOXETINE HYDROCHLORIDE
     Route: 048
     Dates: start: 20140725
  8. NEXIUM [Concomitant]
     Active Substance: ESOMEPRAZOLE MAGNESIUM
     Route: 048
     Dates: start: 20160827
  9. METGLUCO [Suspect]
     Active Substance: METFORMIN HYDROCHLORIDE
     Indication: TYPE 2 DIABETES MELLITUS
     Route: 048
     Dates: start: 20120322
  10. AMARYL [Concomitant]
     Active Substance: GLIMEPIRIDE
     Indication: TYPE 2 DIABETES MELLITUS
     Dosage: STARTED BEFORE 2009
     Route: 048
     Dates: end: 20151218
  11. FOSAMAC [Concomitant]
     Active Substance: ALENDRONATE SODIUM
     Dosage: START: BEFORE 2009
     Route: 048
  12. TRAMADOL HYDROCHLORIDE. [Concomitant]
     Active Substance: TRAMADOL HYDROCHLORIDE
     Route: 048
     Dates: start: 20160729
  13. LIVALO [Concomitant]
     Active Substance: PITAVASTATIN CALCIUM
     Route: 048
     Dates: start: 20160924
  14. BI SIFROL [Concomitant]
     Active Substance: PRAMIPEXOLE
     Route: 048
     Dates: start: 20110310
  15. MAINTATE [Concomitant]
     Active Substance: BISOPROLOL FUMARATE
     Route: 048
     Dates: start: 20160715
  16. AMARYL [Concomitant]
     Active Substance: GLIMEPIRIDE
     Indication: TYPE 2 DIABETES MELLITUS
     Dosage: BEFORE BREAKFAST AND BEFORE DNNER
     Route: 048
     Dates: start: 20160414, end: 20160617
  17. CANAGLU [Suspect]
     Active Substance: CANAGLIFLOZIN
     Indication: TYPE 2 DIABETES MELLITUS
     Route: 048
     Dates: start: 20151024

REACTIONS (1)
  - Blood ketone body increased [Not Recovered/Not Resolved]

NARRATIVE: CASE EVENT DATE: 20160923
